FAERS Safety Report 10530709 (Version 1)
Quarter: 2014Q4

REPORT INFORMATION
  Report Type: Spontaneous
  Country: US (occurrence: None)
  Receive Date: 20141020
  Receipt Date: 20141020
  Transmission Date: 20150528
  Serious: Yes (Hospitalization)
  Sender: FDA-Public Use
  Company Number: None

PATIENT
  Age: 69 Year
  Sex: Male
  Weight: 84.9 kg

DRUGS (2)
  1. LEUPROLIDE ACETATE. [Suspect]
     Active Substance: LEUPROLIDE ACETATE
     Dosage: PT. RECEIVED A 6MO INJECTION
  2. CASODEX [Suspect]
     Active Substance: BICALUTAMIDE

REACTIONS (3)
  - Dyspnoea exertional [None]
  - Chest pain [None]
  - Cardiac stress test abnormal [None]

NARRATIVE: CASE EVENT DATE: 20140925
